FAERS Safety Report 10466139 (Version 1)
Quarter: 2014Q3

REPORT INFORMATION
  Report Type: Spontaneous
  Country: GB (occurrence: GB)
  Receive Date: 20140922
  Receipt Date: 20140922
  Transmission Date: 20150326
  Serious: Yes (Disabling)
  Sender: FDA-Public Use
  Company Number: GB-SHIRE-GB201405911

PATIENT
  Age: 14 Year
  Sex: Male
  Weight: 47.4 kg

DRUGS (1)
  1. ELVANSE [Suspect]
     Active Substance: LISDEXAMFETAMINE DIMESYLATE
     Indication: ATTENTION DEFICIT/HYPERACTIVITY DISORDER
     Dosage: 70 MG, 1X/DAY:QD
     Route: 048
     Dates: start: 20130920, end: 20131217

REACTIONS (3)
  - Decreased appetite [Recovered/Resolved]
  - Depression [Recovered/Resolved]
  - Disturbance in social behaviour [Recovered/Resolved]

NARRATIVE: CASE EVENT DATE: 20131201
